FAERS Safety Report 10832576 (Version 1)
Quarter: 2015Q1

REPORT INFORMATION
  Report Type: Report from Study
  Country: US (occurrence: US)
  Receive Date: 20150219
  Receipt Date: 20150219
  Transmission Date: 20150721
  Serious: No
  Sender: FDA-Public Use
  Company Number: US-ABBVIE-14P-163-1198776-00

PATIENT
  Sex: Male

DRUGS (5)
  1. VYTORIN [Concomitant]
     Active Substance: EZETIMIBE\SIMVASTATIN
     Indication: HYPERTENSION
     Dosage: 10/20 Q PM
  2. VERAPAMIL ER [Concomitant]
     Active Substance: VERAPAMIL HYDROCHLORIDE
     Indication: HYPERTENSION
  3. TEVETEN [Concomitant]
     Active Substance: EPROSARTAN MESYLATE
     Indication: HYPERTENSION
  4. HUMIRA [Suspect]
     Active Substance: ADALIMUMAB
     Indication: ANKYLOSING SPONDYLITIS
     Dates: start: 2013
  5. TRANDOLAPRIL. [Concomitant]
     Active Substance: TRANDOLAPRIL
     Indication: HYPERTENSION

REACTIONS (3)
  - Incorrect dose administered [Unknown]
  - Device issue [Unknown]
  - Injection site discomfort [Recovered/Resolved]

NARRATIVE: CASE EVENT DATE: 2013
